FAERS Safety Report 19742943 (Version 1)
Quarter: 2021Q3

REPORT INFORMATION
  Report Type: Spontaneous
  Country: US (occurrence: US)
  Receive Date: 20210820
  Receipt Date: 20210820
  Transmission Date: 20211014
  Serious: Yes (Death)
  Sender: FDA-Public Use
  Company Number: None

PATIENT
  Age: 60 Year
  Sex: Female

DRUGS (6)
  1. CAPECITABINE 500 MG [Suspect]
     Active Substance: CAPECITABINE
     Indication: METASTASES TO LIVER
     Dosage: FREQUENCY: 14 DAYS OF 21 DAY CYCLE
     Route: 048
     Dates: start: 20201215
  2. MEGASTROL AC [Concomitant]
  3. MORPHINE SUL [Concomitant]
     Active Substance: MORPHINE SULFATE
  4. ALPRAZOLAM. [Concomitant]
     Active Substance: ALPRAZOLAM
  5. OXYCODONE [Concomitant]
     Active Substance: OXYCODONE
  6. BUPROPION. [Concomitant]
     Active Substance: BUPROPION

REACTIONS (1)
  - Death [None]
